FAERS Safety Report 21578863 (Version 3)
Quarter: 2023Q1

REPORT INFORMATION
  Report Type: Spontaneous
  Country: US (occurrence: US)
  Receive Date: 20221110
  Receipt Date: 20230203
  Transmission Date: 20230418
  Serious: Yes (Hospitalization)
  Sender: FDA-Public Use
  Company Number: US-BRISTOL-MYERS SQUIBB COMPANY-2022-133404

PATIENT
  Age: 75 Year
  Sex: Female

DRUGS (1)
  1. POMALYST [Suspect]
     Active Substance: POMALIDOMIDE
     Indication: Plasma cell myeloma
     Dosage: AKE 1 CAPSULE (4MG TOTAL) BY MOUTH NIGHTLY FOR 21 DAYS OF EACH 28 DAY CYCLE
     Route: 048
     Dates: start: 20210406, end: 20230126

REACTIONS (1)
  - Animal bite [Unknown]
